FAERS Safety Report 24385250 (Version 1)
Quarter: 2024Q4

REPORT INFORMATION
  Report Type: Report from Study
  Country: CA (occurrence: CA)
  Receive Date: 20241001
  Receipt Date: 20241001
  Transmission Date: 20250115
  Serious: Yes (Other)
  Sender: AMARIN
  Company Number: CA-Amarin Pharma  Inc-2024AMR000488

PATIENT
  Age: 53 Year
  Sex: Male

DRUGS (2)
  1. VASCEPA [Suspect]
     Active Substance: ICOSAPENT ETHYL
     Indication: Cardiovascular disorder
     Dates: start: 20230913
  2. VASCEPA [Suspect]
     Active Substance: ICOSAPENT ETHYL
     Dosage: UNKNOWN
     Dates: start: 2024

REACTIONS (2)
  - Pneumonia [Unknown]
  - Peripheral swelling [Recovered/Resolved]
